FAERS Safety Report 13819235 (Version 1)
Quarter: 2017Q3

REPORT INFORMATION
  Report Type: Report from Study
  Country: US (occurrence: US)
  Receive Date: 20170731
  Receipt Date: 20170731
  Transmission Date: 20171127
  Serious: Yes (Hospitalization)
  Sender: FDA-Public Use
  Company Number: US-IPSEN-CABO-17008389

PATIENT
  Sex: Male
  Weight: 71.66 kg

DRUGS (11)
  1. CABOMETYX [Suspect]
     Active Substance: CABOZANTINIB S-MALATE
     Indication: RENAL CANCER
     Dosage: 40 MG, QD
     Route: 048
     Dates: start: 201701, end: 2017
  2. TOPROL XL [Concomitant]
     Active Substance: METOPROLOL SUCCINATE
  3. ELIQUIS [Concomitant]
     Active Substance: APIXABAN
  4. GABAPENTIN. [Concomitant]
     Active Substance: GABAPENTIN
  5. CABOMETYX [Suspect]
     Active Substance: CABOZANTINIB S-MALATE
     Indication: METASTASES TO PANCREAS
  6. OXYCODONE [Concomitant]
     Active Substance: OXYCODONE
  7. PANTOPRAZOLE [Concomitant]
     Active Substance: PANTOPRAZOLE
  8. FENTANYL. [Concomitant]
     Active Substance: FENTANYL
  9. CABOMETYX [Suspect]
     Active Substance: CABOZANTINIB S-MALATE
     Indication: METASTASES TO LIVER
     Dosage: 40 MG, QD
     Route: 048
     Dates: start: 2017
  10. PERCOCET [Concomitant]
     Active Substance: ACETAMINOPHEN\OXYCODONE HYDROCHLORIDE
  11. PREDNISONE. [Concomitant]
     Active Substance: PREDNISONE

REACTIONS (7)
  - Rectal haemorrhage [Recovered/Resolved]
  - Insomnia [Recovering/Resolving]
  - Fatigue [Recovering/Resolving]
  - Candida infection [Recovering/Resolving]
  - Blood pressure increased [Recovering/Resolving]
  - Herpes zoster [Recovering/Resolving]
  - Asthenia [Recovering/Resolving]
